FAERS Safety Report 7323937-2 (Version None)
Quarter: 2011Q1

REPORT INFORMATION
  Report Type: 
  Country: None (occurrence: None)
  Receive Date: 20110301
  Receipt Date: 20110222
  Transmission Date: 20110831
  Serious: Yes (Other)
  Sender: FDA-Public Use
  Company Number: B0693878A

PATIENT

DRUGS (2)
  1. HEPTODIN [Suspect]
     Dosage: .1G PER DAY
     Route: 048
     Dates: start: 20050101, end: 20070101
  2. HEPSERA [Suspect]
     Dosage: 10MG PER DAY
     Route: 048
     Dates: start: 20070101

REACTIONS (6)
  - OSTEOMALACIA [None]
  - FANCONI SYNDROME [None]
  - ASTHENIA [None]
  - MYALGIA [None]
  - HEPATITIS B [None]
  - MOVEMENT DISORDER [None]
